FAERS Safety Report 16903284 (Version 1)
Quarter: 2019Q4

REPORT INFORMATION
  Report Type: Spontaneous
  Country: US (occurrence: US)
  Receive Date: 20190816
  Receipt Date: 20190816
  Transmission Date: 20200122
  Serious: No
  Sender: FDA-Public Use
  Company Number: None

PATIENT
  Age: 74 Year
  Sex: Female

DRUGS (1)
  1. PROLIA [Suspect]
     Active Substance: DENOSUMAB
     Dates: start: 20180829

REACTIONS (4)
  - Swelling face [None]
  - Tooth extraction [None]
  - Dental restoration failure [None]
  - Pain in jaw [None]

NARRATIVE: CASE EVENT DATE: 20190301
